FAERS Safety Report 7434764-X (Version None)
Quarter: 2011Q2

REPORT INFORMATION
  Report Type: 
  Country: None (occurrence: None)
  Receive Date: 20110425
  Receipt Date: 20110412
  Transmission Date: 20111010
  Serious: Yes (Hospitalization)
  Sender: FDA-Public Use
  Company Number: JP-JNJFOC-20100706470

PATIENT
  Age: 68 Year
  Sex: Female
  Weight: 43 kg

DRUGS (18)
  1. REMICADE [Suspect]
     Route: 042
  2. REMICADE [Suspect]
     Route: 042
  3. PREDNISOLONE [Concomitant]
     Route: 048
  4. EVISTA [Concomitant]
     Route: 048
  5. REMICADE [Suspect]
     Route: 042
  6. METHOTREXATE [Concomitant]
     Indication: RHEUMATOID ARTHRITIS
     Route: 048
  7. DIBASIC POTASSIUM PHOSPHATE INORGANIC SALTS COMBINED DRUG [Concomitant]
     Route: 031
  8. CYTOTEC [Concomitant]
     Route: 048
  9. FOLIC ACID [Concomitant]
     Indication: PROPHYLAXIS
     Route: 048
  10. PYRIDOXAL PHOSPHATE [Concomitant]
     Indication: PROPHYLAXIS
     Route: 048
  11. FAMOTIDINE [Concomitant]
     Route: 048
  12. BAKTAR [Concomitant]
     Indication: PROPHYLAXIS
  13. CALONAL [Concomitant]
     Indication: PROPHYLAXIS
     Route: 048
  14. AMOBAN [Concomitant]
     Route: 048
  15. ALLEGRA [Concomitant]
     Indication: PROPHYLAXIS
     Route: 048
  16. REMICADE [Suspect]
     Indication: RHEUMATOID ARTHRITIS
     Route: 042
  17. REMICADE [Suspect]
     Route: 042
  18. NEOISCOTIN [Concomitant]
     Indication: ANTIBIOTIC PROPHYLAXIS
     Route: 048

REACTIONS (1)
  - RASH [None]
